FAERS Safety Report 5596947-3 (Version None)
Quarter: 2007Q4

REPORT INFORMATION
  Report Type: 
  Country: None (occurrence: None)
  Receive Date: 20071220
  Receipt Date: 20070419
  Transmission Date: 20080405
  Serious: Yes (Other)
  Sender: FDA-Public Use
  Company Number: ENTC2007-0112

PATIENT
  Age: 89 Year
  Sex: Female

DRUGS (1)
  1. STALEVO 100 [Suspect]
     Indication: PARKINSON'S DISEASE
     Dosage: THREE TIMES DAILY, ORAL
     Route: 048

REACTIONS (1)
  - HALLUCINATION [None]
